FAERS Safety Report 7067066 (Version 2)
Quarter: 2014Q1

REPORT INFORMATION
  Report Type: Spontaneous
  Country: US (occurrence: None)
  Receive Date: 20090723
  Receipt Date: 20140113
  Transmission Date: 20141002
  Serious: No
  Sender: FDA-Public Use
  Company Number: 2009S1005610

PATIENT
  Sex: Female

DRUGS (6)
  1. FLEET PHOSPHO-SODA ORAL SALINE LAXATIVE, GINGER-LEMON FLAVOR [Suspect]
     Route: 048
  2. LIPITOR (ATORVASTATIN CALCIUM) [Concomitant]
  3. PRILOSEC (OMEPRAZOLE) [Concomitant]
  4. METOPROLOL (METOPROLOL) [Concomitant]
  5. TYLENOL (PARACETAMOL) [Concomitant]
  6. CALCIUM + D (COLECALCIFEROL, CALCIUM CARBONATE) [Concomitant]

REACTIONS (1)
  - Blood creatinine increased [None]
